FAERS Safety Report 13254802 (Version 1)
Quarter: 2017Q1

REPORT INFORMATION
  Report Type: Spontaneous
  Country: US (occurrence: US)
  Receive Date: 20170217
  Receipt Date: 20170217
  Transmission Date: 20170428
  Serious: Yes (Other)
  Sender: FDA-Public Use
  Company Number: None

PATIENT
  Age: 32 Year
  Sex: Male
  Weight: 78.75 kg

DRUGS (2)
  1. ZICAM ALLERGY RELIEF [Suspect]
     Active Substance: HOMEOPATHICS
     Indication: NASAL CONGESTION
     Dosage: ?          OTHER ROUTE:NASAL SPRAY?
     Route: 045
     Dates: start: 20170216, end: 20170216
  2. SUDAFED [Concomitant]
     Active Substance: PSEUDOEPHEDRINE HYDROCHLORIDE

REACTIONS (3)
  - Ageusia [None]
  - Anosmia [None]
  - Lacrimation increased [None]

NARRATIVE: CASE EVENT DATE: 20170216
